FAERS Safety Report 9815271 (Version 1)
Quarter: 2014Q1

REPORT INFORMATION
  Report Type: Report from Study
  Country: CA (occurrence: CA)
  Receive Date: 20140114
  Receipt Date: 20140114
  Transmission Date: 20141002
  Serious: Yes (Other)
  Sender: FDA-Public Use
  Company Number: CA-JNJFOC-20140104571

PATIENT
  Age: 73 Year
  Sex: Male
  Weight: 106.2 kg

DRUGS (11)
  1. REMICADE [Suspect]
     Indication: CROHN^S DISEASE
     Route: 042
     Dates: start: 20130412
  2. TAMSULOSIN [Concomitant]
     Route: 065
  3. COUMADIN [Concomitant]
     Route: 065
  4. CYANOCOBALAMIN [Concomitant]
     Route: 065
  5. VASOTEC [Concomitant]
     Route: 065
  6. BISOPROLOL [Concomitant]
     Route: 065
  7. METFORMIN [Concomitant]
     Route: 065
  8. FERROUS GLUCONATE [Concomitant]
     Route: 065
  9. LIPITOR [Concomitant]
     Route: 065
  10. PREVACID [Concomitant]
     Route: 065
  11. ACETYLSALICYLIC ACID [Concomitant]
     Route: 065

REACTIONS (1)
  - Eye laser surgery [Recovered/Resolved]
